FAERS Safety Report 4669321-1 (Version None)
Quarter: 2005Q2

REPORT INFORMATION
  Report Type: 
  Country: None (occurrence: None)
  Receive Date: 20050519
  Receipt Date: 20050512
  Transmission Date: 20051028
  Serious: Yes (Other)
  Sender: FDA-Public Use
  Company Number: DEWYE664312MAY05

PATIENT
  Sex: Female

DRUGS (1)
  1. VENLAFAXINE HCL [Suspect]
     Dosage: ORAL
     Route: 048

REACTIONS (1)
  - BRAIN STEM INFARCTION [None]
